FAERS Safety Report 13157661 (Version 2)
Quarter: 2017Q2

REPORT INFORMATION
  Report Type: Spontaneous
  Country: US (occurrence: US)
  Receive Date: 20170127
  Receipt Date: 20170411
  Transmission Date: 20170830
  Serious: No
  Sender: FDA-Public Use
  Company Number: US-JNJFOC-20170105770

PATIENT
  Age: 60 Year
  Sex: Female
  Weight: 70.31 kg

DRUGS (13)
  1. HYDROXYCHLOROQUINE [Concomitant]
     Active Substance: HYDROXYCHLOROQUINE
     Indication: ARTHRITIS
     Route: 048
     Dates: start: 2009
  2. LAMOTRIGINE. [Concomitant]
     Active Substance: LAMOTRIGINE
     Indication: DRUG THERAPY
     Route: 048
     Dates: start: 2003
  3. FLOVENT HFA [Concomitant]
     Active Substance: FLUTICASONE PROPIONATE
     Indication: ASTHMA
     Dosage: 88MCG/ -/ 44MCG
     Route: 065
  4. DESONATE [Concomitant]
     Active Substance: DESONIDE
     Indication: PSORIASIS
     Dosage: AS NEEDED
     Route: 061
  5. MELOXICAM. [Concomitant]
     Active Substance: MELOXICAM
     Indication: ARTHRITIS
     Route: 048
     Dates: start: 2009
  6. NASONEX [Concomitant]
     Active Substance: MOMETASONE FUROATE
     Indication: MULTIPLE ALLERGIES
     Dosage: 50 MCG, ONCE OR TWICE DAILY, NASAL SPRAY
     Route: 045
     Dates: start: 2014
  7. LORATADINE. [Concomitant]
     Active Substance: LORATADINE
     Indication: MULTIPLE ALLERGIES
     Route: 048
  8. DESONATE [Concomitant]
     Active Substance: DESONIDE
     Indication: STEROID THERAPY
     Dosage: AS NEEDED
     Route: 061
  9. OMEPRAZOLE. [Concomitant]
     Active Substance: OMEPRAZOLE
     Indication: CROHN^S DISEASE
     Route: 048
     Dates: start: 2002
  10. DESONATE [Concomitant]
     Active Substance: DESONIDE
     Indication: SKIN DISORDER
     Dosage: AS NEEDED
     Route: 061
  11. SIMPONI [Suspect]
     Active Substance: GOLIMUMAB
     Indication: PSORIATIC ARTHROPATHY
     Route: 058
     Dates: start: 201601
  12. VENLAFAXINE XR [Concomitant]
     Active Substance: VENLAFAXINE HYDROCHLORIDE
     Indication: ANTIDEPRESSANT THERAPY
     Route: 048
     Dates: start: 2003
  13. CLOBETASOL PROPIONATE. [Concomitant]
     Active Substance: CLOBETASOL PROPIONATE
     Indication: PSORIASIS
     Dosage: EVERY DAY FOR 2 WEEKS, THEN OFF FOR 1.5 WEEKS OR SO/ TOPICAL
     Route: 061

REACTIONS (4)
  - Off label use [Unknown]
  - Drug dose omission [Unknown]
  - Product use issue [Unknown]
  - Device malfunction [Unknown]

NARRATIVE: CASE EVENT DATE: 201601
